FAERS Safety Report 7719254-9 (Version None)
Quarter: 2011Q3

REPORT INFORMATION
  Report Type: 
  Country: None (occurrence: None)
  Receive Date: 20110825
  Receipt Date: 20110810
  Transmission Date: 20111222
  Serious: Yes (Other)
  Sender: FDA-Public Use
  Company Number: ALK_01673_2011

PATIENT
  Sex: Male
  Weight: 95.2554 kg

DRUGS (11)
  1. VIVITROL [Suspect]
     Indication: ALCOHOLISM
     Dosage: (380 MG 1X/MONTH INTRAMUSCULAR)
     Route: 030
     Dates: start: 20100301, end: 20101001
  2. SIMVASTATIN [Concomitant]
  3. MULTI-VITAMIN [Concomitant]
  4. LEVOTHYROXINE SODIUM [Concomitant]
  5. EFFEXOR [Concomitant]
  6. BENICAR [Concomitant]
  7. OMEPRAZOLE [Concomitant]
  8. FISH OIL [Concomitant]
  9. NAPROXEN [Concomitant]
  10. METHOCARBAMOL [Concomitant]
  11. VIVITROL [Suspect]
     Indication: ALCOHOLISM
     Dosage: 380 MG 1X/MONTH INTRAMUSCULAR
     Route: 030
     Dates: start: 20110101

REACTIONS (3)
  - INJECTION SITE ABSCESS [None]
  - INJECTION SITE PAIN [None]
  - INJECTION SITE NODULE [None]
